FAERS Safety Report 9970171 (Version 1)
Quarter: 2014Q1

REPORT INFORMATION
  Report Type: Spontaneous
  Country: BE (occurrence: None)
  Receive Date: 20140304
  Receipt Date: 20140304
  Transmission Date: 20141002
  Serious: Yes (Other)
  Sender: FDA-Public Use
  Company Number: 7270328

PATIENT
  Age: 28 Year
  Sex: Female

DRUGS (1)
  1. LEVOTHYROXINE(LEVOTHYROXINE) (LEVOTHYROXINE SODIUM) [Suspect]
     Indication: THYROIDECTOMY

REACTIONS (7)
  - Caesarean section [None]
  - Nausea [None]
  - Pre-eclampsia [None]
  - Headache [None]
  - Maternal exposure during pregnancy [None]
  - Induced labour [None]
  - Foetal heart rate abnormal [None]
